FAERS Safety Report 21364476 (Version 2)
Quarter: 2022Q3

REPORT INFORMATION
  Report Type: Spontaneous
  Country: US (occurrence: US)
  Receive Date: 20220922
  Receipt Date: 20220927
  Transmission Date: 20221026
  Serious: Yes (Death, Hospitalization, Other)
  Sender: FDA-Public Use
  Company Number: US-009507513-2209USA007480

PATIENT
  Sex: Male

DRUGS (1)
  1. VERQUVO [Suspect]
     Active Substance: VERICIGUAT
     Dosage: UNK
     Route: 048

REACTIONS (4)
  - Death [Fatal]
  - Adverse event [Unknown]
  - Hospice care [Unknown]
  - Treatment noncompliance [Unknown]
